FAERS Safety Report 5692572-4 (Version None)
Quarter: 2008Q2

REPORT INFORMATION
  Report Type: 
  Country: None (occurrence: None)
  Receive Date: 20080328
  Receipt Date: 20071203
  Transmission Date: 20081010
  Serious: No
  Sender: FDA-Public Use
  Company Number: US-WYE-H01616607

PATIENT
  Age: 60 Year
  Sex: Male
  Weight: 129.39 kg

DRUGS (3)
  1. TORISEL [Suspect]
     Indication: RENAL CELL CARCINOMA
     Dosage: ONE DOSE GIVEN, INTRAVENOUS
     Route: 042
     Dates: start: 20071112, end: 20071112
  2. PERCOCET [Concomitant]
  3. FENTANYL [Concomitant]

REACTIONS (4)
  - CHEST DISCOMFORT [None]
  - DYSPNOEA [None]
  - FLUSHING [None]
  - PRURITUS [None]
